FAERS Safety Report 9443880 (Version 2)
Quarter: 2013Q4

REPORT INFORMATION
  Report Type: Spontaneous
  Country: CN (occurrence: CN)
  Receive Date: 20130806
  Receipt Date: 20131107
  Transmission Date: 20140711
  Serious: Yes (Hospitalization, Other)
  Sender: FDA-Public Use
  Company Number: PHHY2013CN083097

PATIENT
  Age: 51 Year
  Sex: Female

DRUGS (3)
  1. CARBAMAZEPINE [Suspect]
     Indication: TRIGEMINAL NEURALGIA
     Dosage: 0.2 G, TID
     Route: 048
  2. CARBAMAZEPINE [Suspect]
     Dosage: 2 G IN ONE DAY
     Route: 048
  3. CARBAMAZEPINE [Suspect]
     Dosage: 0.4 G, IN TWO DAYS
     Route: 048

REACTIONS (9)
  - Hemiplegia [Recovered/Resolved]
  - Hemiparesis [Recovered/Resolved]
  - Hypoaesthesia [Recovered/Resolved]
  - Hypotonia [Recovered/Resolved]
  - Areflexia [Recovered/Resolved]
  - Dizziness [Recovered/Resolved]
  - Vision blurred [Recovered/Resolved]
  - Overdose [Recovered/Resolved]
  - Pain [Recovered/Resolved]
